FAERS Safety Report 6017360 (Version 4)
Quarter: 2014Q2

REPORT INFORMATION
  Report Type: Spontaneous
  Country: GB (occurrence: GB)
  Receive Date: 20060403
  Receipt Date: 20140528
  Transmission Date: 20141212
  Serious: Yes (Hospitalization, Disabling, Other)
  Sender: FDA-Public Use
  Company Number: GB-JNJFOC-20060205061

PATIENT
  Age: 71 Year
  Sex: Female
  Weight: 84 kg

DRUGS (13)
  1. REMICADE [Suspect]
     Indication: RHEUMATOID ARTHRITIS
     Route: 042
     Dates: start: 20040819, end: 20051017
  2. TRAMADOL [Concomitant]
     Indication: PRODUCT USED FOR UNKNOWN INDICATION
     Route: 065
  3. DICLOFENAC [Concomitant]
     Indication: RHEUMATOID ARTHRITIS
     Route: 048
  4. FOLIC ACID [Concomitant]
     Indication: RHEUMATOID ARTHRITIS
     Route: 048
  5. LANSOPRAZOLE [Concomitant]
     Indication: RHEUMATOID ARTHRITIS
     Route: 048
  6. METHOTREXATE [Concomitant]
     Indication: RHEUMATOID ARTHRITIS
     Route: 048
  7. FOSAMAX [Concomitant]
     Route: 065
  8. CO CODAMOL [Concomitant]
     Route: 065
  9. CALCICHEW [Concomitant]
     Route: 065
  10. ARTHROTEC [Concomitant]
     Route: 065
  11. CO-PROXAMOL [Concomitant]
     Route: 065
  12. TEMAZEPAM [Concomitant]
     Route: 065
  13. VEGANIN [Concomitant]

REACTIONS (1)
  - Peritoneal tuberculosis [Not Recovered/Not Resolved]
